FAERS Safety Report 24536460 (Version 2)
Quarter: 2025Q4

REPORT INFORMATION
  Report Type: Report from Study
  Country: US (occurrence: None)
  Receive Date: 20241022
  Receipt Date: 20251217
  Transmission Date: 20260118
  Serious: Yes (Hospitalization, Other)
  Sender: UCB
  Company Number: US-UCBSA-2024053252

PATIENT
  Age: 36 Year
  Weight: 92.08 kg

DRUGS (1)
  1. ZILUCOPLAN [Suspect]
     Active Substance: ZILUCOPLAN
     Indication: Myasthenia gravis
     Dosage: 32.4 MILLIGRAM, ONCE DAILY (QD)

REACTIONS (3)
  - Myasthenia gravis [Not Recovered/Not Resolved]
  - Myasthenia gravis crisis [Recovered/Resolved]
  - Infection [Recovered/Resolved]
